FAERS Safety Report 23329011 (Version 1)
Quarter: 2023Q4

REPORT INFORMATION
  Report Type: Spontaneous
  Country: IL (occurrence: IL)
  Receive Date: 20231222
  Receipt Date: 20231222
  Transmission Date: 20240110
  Serious: No
  Sender: FDA-Public Use
  Company Number: IL-ALKEM LABORATORIES LIMITED-IL-ALKEM-2023-10649

PATIENT

DRUGS (1)
  1. MORPHINE SULFATE [Suspect]
     Active Substance: MORPHINE SULFATE
     Indication: Product used for unknown indication
     Dosage: 3 MILLIGRAM, (IN SALINE), INTRAMUSCULAR(IM) OR INTRAWOUND (IW) INJECTION
     Route: 065

REACTIONS (1)
  - Post procedural haemorrhage [Unknown]
